FAERS Safety Report 8501532 (Version 2)
Quarter: 2013Q4

REPORT INFORMATION
  Report Type: Spontaneous
  Country: CA (occurrence: CA)
  Receive Date: 20120410
  Receipt Date: 20131105
  Transmission Date: 20140711
  Serious: Yes (Other)
  Sender: FDA-Public Use
  Company Number: CA-ROCHE-1055860

PATIENT
  Age: 65 Year
  Sex: Female

DRUGS (10)
  1. XOLAIR [Suspect]
     Indication: ASTHMA
     Route: 058
     Dates: start: 20120309
  2. XOLAIR [Suspect]
     Route: 058
     Dates: start: 201203, end: 201204
  3. XOLAIR [Suspect]
     Route: 065
     Dates: start: 201306
  4. INDAPAMIDE [Suspect]
     Indication: PRODUCT USED FOR UNKNOWN INDICATION
     Route: 065
     Dates: start: 201306
  5. COVERSYL PLUS (CANADA) [Suspect]
     Indication: PRODUCT USED FOR UNKNOWN INDICATION
     Route: 065
     Dates: start: 201306
  6. VENTOLIN [Concomitant]
  7. SINGULAIR [Concomitant]
  8. ADVAIR [Concomitant]
  9. BENADRYL (CANADA) [Concomitant]
  10. PREDNISONE [Concomitant]

REACTIONS (11)
  - Blood pressure increased [Recovered/Resolved]
  - Blood pressure fluctuation [Unknown]
  - Nasopharyngitis [Unknown]
  - Chest discomfort [Unknown]
  - Feeling cold [Unknown]
  - Neck pain [Recovered/Resolved]
  - Headache [Recovered/Resolved]
  - Arthralgia [Recovered/Resolved]
  - Productive cough [Unknown]
  - Anxiety [Recovered/Resolved]
  - Pain in extremity [Unknown]
